FAERS Safety Report 5812425-8 (Version None)
Quarter: 2008Q3

REPORT INFORMATION
  Report Type: 
  Country: None (occurrence: None)
  Receive Date: 20080711
  Receipt Date: 20080627
  Transmission Date: 20090109
  Serious: Yes (Hospitalization)
  Sender: FDA-Public Use
  Company Number: 001014

PATIENT
  Sex: 0

DRUGS (1)
  1. PLETAL [Suspect]
     Dosage: 100 MG, ORAL
     Route: 048

REACTIONS (4)
  - CHOLECYSTITIS [None]
  - CHOLELITHIASIS [None]
  - PANCREATITIS ACUTE [None]
  - PANCYTOPENIA [None]
